FAERS Safety Report 8803653 (Version 2)
Quarter: 2012Q4

REPORT INFORMATION
  Report Type: Report from Study
  Country: DZ (occurrence: DZ)
  Receive Date: 20120924
  Receipt Date: 20121005
  Transmission Date: 20130627
  Serious: Yes (Disabling)
  Sender: FDA-Public Use
  Company Number: DZ-MILLENNIUM PHARMACEUTICALS, INC.-2012-06609

PATIENT

DRUGS (1)
  1. VELCADE [Suspect]
     Indication: MULTIPLE MYELOMA
     Dosage: 1.3 mg/m2, UNK
     Route: 065
     Dates: start: 20100720

REACTIONS (1)
  - Paraesthesia [Not Recovered/Not Resolved]
